FAERS Safety Report 16263808 (Version 2)
Quarter: 2021Q3

REPORT INFORMATION
  Report Type: Report from Study
  Country: CA (occurrence: CA)
  Receive Date: 20190502
  Receipt Date: 20210708
  Transmission Date: 20211014
  Serious: Yes (Hospitalization, Other)
  Sender: FDA-Public Use
  Company Number: CA-BRISTOL-MYERS SQUIBB COMPANY-BMS-2019-042002

PATIENT
  Age: 67 Year
  Sex: Male

DRUGS (4)
  1. BLINDED APIXABAN [Suspect]
     Active Substance: APIXABAN
     Indication: CEREBROVASCULAR ACCIDENT PROPHYLAXIS
     Dosage: UNK
     Route: 065
     Dates: start: 20171020, end: 20180923
  2. BLINDED ASPIRIN [Suspect]
     Active Substance: ASPIRIN
     Indication: CEREBROVASCULAR ACCIDENT PROPHYLAXIS
     Dosage: UNK
     Route: 065
     Dates: start: 20171020, end: 20180923
  3. BLINDED APIXABAN [Suspect]
     Active Substance: APIXABAN
     Dosage: UNK
     Route: 065
     Dates: start: 20181001
  4. BLINDED ASPIRIN [Suspect]
     Active Substance: ASPIRIN
     Dosage: UNK
     Route: 065
     Dates: start: 20181001

REACTIONS (1)
  - Pneumonia [Recovered/Resolved]

NARRATIVE: CASE EVENT DATE: 20180923
